FAERS Safety Report 6317212-2 (Version None)
Quarter: 2009Q3

REPORT INFORMATION
  Report Type: 
  Country: None (occurrence: None)
  Receive Date: 20090819
  Receipt Date: 20090809
  Transmission Date: 20100115
  Serious: Yes (Hospitalization, Disabling)
  Sender: FDA-Public Use
  Company Number: SP00793

PATIENT
  Age: 67 Year
  Sex: Female

DRUGS (9)
  1. VISICOL [Suspect]
     Indication: COLONOSCOPY
     Dosage: TAB/ ONCE, ORAL
     Route: 048
  2. VISICOL [Suspect]
     Indication: PREOPERATIVE CARE
     Dosage: TAB/ ONCE, ORAL
     Route: 048
  3. BENAZEPRIL (TABLETS) [Concomitant]
  4. HYDROCHLOROTHIAZIDE [Concomitant]
  5. AMLODIPINE [Concomitant]
  6. LIPITOR [Concomitant]
  7. GLIPIZIDE [Concomitant]
  8. METFORMIN (TABLETS) [Concomitant]
  9. ASPIRIN [Concomitant]

REACTIONS (8)
  - ARTERIOSCLEROSIS [None]
  - INTERCAPILLARY GLOMERULOSCLEROSIS [None]
  - KIDNEY FIBROSIS [None]
  - NEPHROCALCINOSIS [None]
  - PYREXIA [None]
  - RENAL FAILURE ACUTE [None]
  - RENAL TUBULAR ATROPHY [None]
  - URATE NEPHROPATHY [None]
